FAERS Safety Report 8284605 (Version 3)
Quarter: 2012Q4

REPORT INFORMATION
  Report Type: 
  Country: US (occurrence: US)
  Receive Date: 20111212
  Receipt Date: 20120926
  Transmission Date: 20130627
  Serious: Yes (Hospitalization)
  Sender: FDA-Public Use
  Company Number: US-ALEXION-A201101833

PATIENT
  Age: 44 Year
  Sex: Female

DRUGS (4)
  1. SOLIRIS 300MG [Suspect]
     Indication: PAROXYSMAL NOCTURNAL HAEMOGLOBINURIA
     Dosage: 900 mg, q2w
     Route: 042
  2. TAMOXIFEN [Concomitant]
     Indication: BREAST CANCER
     Dosage: UNK
  3. SYNTHROID [Concomitant]
     Indication: HYPOTHYROIDISM
     Dosage: UNK
  4. LEXAPRO [Concomitant]
     Dosage: UNK

REACTIONS (5)
  - Herpes pharyngitis [Recovered/Resolved]
  - Vaginal lesion [Recovered/Resolved]
  - Anaemia [Recovered/Resolved]
  - Antinuclear antibody increased [Recovered/Resolved]
  - Fatigue [Unknown]
